FAERS Safety Report 12749440 (Version 1)
Quarter: 2016Q3

REPORT INFORMATION
  Report Type: Report from Study
  Country: NL (occurrence: NL)
  Receive Date: 20160915
  Receipt Date: 20160915
  Transmission Date: 20161109
  Serious: Yes (Hospitalization)
  Sender: FDA-Public Use
  Company Number: NL-ABBVIE-16P-114-1728024-00

PATIENT
  Sex: Female
  Weight: 3.28 kg

DRUGS (1)
  1. SYNAGIS [Suspect]
     Active Substance: PALIVIZUMAB
     Indication: PRODUCT USED FOR UNKNOWN INDICATION
     Route: 030
     Dates: start: 20160901, end: 20160901

REACTIONS (2)
  - Growth retardation [Not Recovered/Not Resolved]
  - Hypophagia [Not Recovered/Not Resolved]
